FAERS Safety Report 7898831-9 (Version None)
Quarter: 2011Q4

REPORT INFORMATION
  Report Type: 
  Country: None (occurrence: None)
  Receive Date: 20111107
  Receipt Date: 20111024
  Transmission Date: 20120403
  Serious: Yes (Hospitalization)
  Sender: FDA-Public Use
  Company Number: JP-UCBSA-003576

PATIENT
  Age: 68 Year
  Sex: Female

DRUGS (24)
  1. METHOTREXATE [Concomitant]
     Dates: start: 20090417
  2. DICLOFENAC SODIUM [Concomitant]
     Route: 054
     Dates: start: 20090301
  3. MOSAPRIDE CITRATE HYDRATE [Concomitant]
     Indication: GASTRIC ULCER
     Dates: start: 20090301
  4. TIQUIZIUM BROMIDE [Concomitant]
     Indication: PROPHYLAXIS AGAINST GASTROINTESTINAL ULCER
     Route: 048
     Dates: start: 20090301, end: 20090603
  5. RABEPRAZOLE SODIUM [Concomitant]
     Indication: GASTRIC ULCER
     Route: 048
     Dates: start: 20090301
  6. FOLIC ACID [Concomitant]
     Dates: start: 20090419
  7. ISONIAZID [Concomitant]
     Dates: start: 20090603, end: 20100318
  8. METHOTREXATE [Concomitant]
     Dates: start: 20100903
  9. CELECOXIB [Concomitant]
     Dates: start: 20090416
  10. VALPROATE SODIUM [Concomitant]
     Dates: start: 20100318
  11. METHOTREXATE [Concomitant]
     Indication: RHEUMATOID ARTHRITIS
     Route: 048
     Dates: start: 20070406, end: 20090410
  12. REBAMIPIDE [Concomitant]
     Indication: PROPHYLAXIS AGAINST GASTROINTESTINAL ULCER
     Route: 048
     Dates: start: 20090301, end: 20090603
  13. SCOPOLAMINE BUTYLBROMIDE [Concomitant]
     Indication: GASTRIC ULCER
     Dates: start: 20090301
  14. CANDESARTAN CILEXETIL [Concomitant]
     Dates: start: 20081001
  15. CERTOLIZUMAB PEGOL [Suspect]
     Indication: RHEUMATOID ARTHRITIS
     Route: 058
     Dates: start: 20091001, end: 20100527
  16. KETOPROFEN [Concomitant]
     Dates: start: 20101220
  17. LOXOPROFEN SODIUM [Concomitant]
     Indication: RHEUMATOID ARTHRITIS
     Route: 048
     Dates: start: 20070101, end: 20090101
  18. CANDESARTAN CILEXETIL [Concomitant]
     Indication: BLOOD PRESSURE INCREASED
     Dates: start: 20081001
  19. RABEPRAZOLE SODIUM [Concomitant]
     Indication: PROPHYLAXIS AGAINST GASTROINTESTINAL ULCER
     Route: 048
     Dates: start: 20090301
  20. REBAMIPIDE [Concomitant]
     Indication: GASTRIC ULCER
     Route: 048
     Dates: start: 20090301, end: 20090603
  21. KETOPROFEN [Concomitant]
     Dosage: DAILY DOSE: ONE PATCH
     Dates: start: 20090416
  22. CERTOLIZUMAB PEGOL [Suspect]
     Route: 058
     Dates: start: 20100722, end: 20111013
  23. PREDNISOLONE FARNESYLATE [Concomitant]
     Dosage: ADEQUATED DOSE
     Dates: start: 20090416
  24. BETAMETHASONE [Concomitant]
     Dates: start: 20100319

REACTIONS (3)
  - MENINGIOMA [None]
  - CONTUSION [None]
  - INTRACRANIAL ANEURYSM [None]
